FAERS Safety Report 9705495 (Version 2)
Quarter: 2014Q2

REPORT INFORMATION
  Report Type: Spontaneous
  Country: US (occurrence: US)
  Receive Date: 20131122
  Receipt Date: 20140402
  Transmission Date: 20141212
  Serious: Yes (Hospitalization, Other)
  Sender: FDA-Public Use
  Company Number: US-FRI-1000051466

PATIENT
  Age: 43 Year
  Sex: Female
  Weight: 79.38 kg

DRUGS (7)
  1. VIIBRYD [Suspect]
     Indication: DEPRESSION
     Dosage: 10 MG
     Route: 048
     Dates: start: 20130615, end: 20130621
  2. VIIBRYD [Suspect]
     Indication: ANXIETY
     Dosage: 20 MG
     Route: 048
     Dates: start: 20130622, end: 20130628
  3. VIIBRYD [Suspect]
     Indication: DEPRESSION
     Dosage: 40 MG
     Route: 048
     Dates: start: 20130629, end: 201310
  4. VIIBRYD [Suspect]
     Indication: ANXIETY
     Dosage: 20 MG
     Route: 048
     Dates: start: 201310, end: 20131006
  5. VIIBRYD [Suspect]
     Indication: DEPRESSION
     Dosage: 10 MG
     Route: 048
     Dates: start: 20131007, end: 20131008
  6. VIIBRYD [Suspect]
     Indication: ANXIETY
  7. TRAMADOL [Suspect]
     Indication: BACK INJURY

REACTIONS (16)
  - Drug withdrawal syndrome [Recovered/Resolved]
  - Abnormal loss of weight [Recovered/Resolved]
  - Delusional disorder, unspecified type [Recovered/Resolved]
  - Malaise [Recovered/Resolved]
  - Panic attack [Recovered/Resolved]
  - Amnesia [Recovered/Resolved]
  - Fear [Recovered/Resolved]
  - Nightmare [Recovered/Resolved]
  - Ageusia [Recovered/Resolved]
  - Decreased appetite [Recovered/Resolved]
  - Hypoaesthesia [Recovered/Resolved]
  - Nausea [Recovered/Resolved]
  - Fatigue [Recovered/Resolved]
  - Parosmia [Not Recovered/Not Resolved]
  - Off label use [Recovered/Resolved]
  - Hallucination [Unknown]
